FAERS Safety Report 23113011 (Version 3)
Quarter: 2024Q1

REPORT INFORMATION
  Report Type: Report from Study
  Country: US (occurrence: US)
  Receive Date: 20231027
  Receipt Date: 20240206
  Transmission Date: 20240410
  Serious: Yes (Death, Other)
  Sender: FDA-Public Use
  Company Number: US-ACADIA PHARMACEUTICALS INC.-ACA-2023-PIM-004513

PATIENT
  Age: 65 Year
  Sex: Male

DRUGS (12)
  1. NUPLAZID [Suspect]
     Active Substance: PIMAVANSERIN TARTRATE
     Indication: Parkinson^s disease
     Dosage: 34 MILLIGRAM, QD
     Route: 048
     Dates: start: 202103, end: 20240103
  2. NUPLAZID [Suspect]
     Active Substance: PIMAVANSERIN TARTRATE
     Indication: Cognitive disorder
  3. NUPLAZID [Suspect]
     Active Substance: PIMAVANSERIN TARTRATE
     Indication: Dementia with Lewy bodies
  4. NUPLAZID [Suspect]
     Active Substance: PIMAVANSERIN TARTRATE
     Indication: Hallucination, visual
  5. CLONAZEPAM [Concomitant]
     Active Substance: CLONAZEPAM
  6. SEROQUEL [Concomitant]
     Active Substance: QUETIAPINE FUMARATE
  7. DONEPEZIL [Concomitant]
     Active Substance: DONEPEZIL
  8. GABAPENTIN [Concomitant]
     Active Substance: GABAPENTIN
  9. METOPROLOL [Concomitant]
     Active Substance: METOPROLOL
  10. VITAMIN D3 [Concomitant]
     Active Substance: CHOLECALCIFEROL
  11. TRAZODONE [Concomitant]
     Active Substance: TRAZODONE HYDROCHLORIDE
  12. SERTRALINE [Concomitant]
     Active Substance: SERTRALINE HYDROCHLORIDE

REACTIONS (3)
  - Death [Recovered/Resolved]
  - Nasopharyngitis [Unknown]
  - Drug ineffective [Recovered/Resolved]

NARRATIVE: CASE EVENT DATE: 20240103
